FAERS Safety Report 9152353 (Version 1)
Quarter: 2013Q1

REPORT INFORMATION
  Report Type: Spontaneous
  Country: US (occurrence: US)
  Receive Date: 20130308
  Receipt Date: 20130308
  Transmission Date: 20140127
  Serious: Yes (Other)
  Sender: FDA-Public Use
  Company Number: US-ELI_LILLY_AND_COMPANY-US201302010376

PATIENT
  Age: 55 Year
  Sex: Female

DRUGS (3)
  1. CYMBALTA [Suspect]
     Indication: AFFECTIVE DISORDER
     Dosage: 60 MG, UNKNOWN
  2. METOPROLOL [Concomitant]
     Dosage: UNK, UNKNOWN
  3. XANAX [Concomitant]
     Dosage: UNK, PRN

REACTIONS (1)
  - Intestinal obstruction [Recovered/Resolved]
